FAERS Safety Report 8222993-7 (Version None)
Quarter: 2012Q1

REPORT INFORMATION
  Report Type: 
  Country: None (occurrence: None)
  Receive Date: 20120320
  Receipt Date: 20120312
  Transmission Date: 20120608
  Serious: Yes (Other)
  Sender: FDA-Public Use
  Company Number: US-ASTRAZENECA-2012SE10181

PATIENT
  Age: 56 Year
  Sex: Female

DRUGS (27)
  1. ULTRAM [Suspect]
     Route: 065
  2. CETIRIZINE HCL [Concomitant]
     Indication: URTICARIA
     Dosage: 10 MG ONE IN THE MORNING PRN
  3. TRAZODONE HCL [Concomitant]
     Indication: SLEEP DISORDER
  4. RANITIDINE [Concomitant]
     Indication: URTICARIA
  5. HYDROXYZINE PAMOATE [Concomitant]
     Indication: URTICARIA
  6. CRESTOR [Suspect]
     Route: 048
  7. CODEINE [Suspect]
     Route: 065
  8. TRAZODONE HCL [Concomitant]
     Indication: DEPRESSION
  9. NAPROXEN SODIUM [Concomitant]
     Indication: PAIN
  10. TRIAMCINOLONE ACETONIDE [Concomitant]
     Indication: ECZEMA
     Dosage: 0.1% APPLY LIGHTLY DAILY PRN
  11. VICODIN [Suspect]
     Route: 065
  12. FUROSEMIDE [Concomitant]
     Indication: FLUID RETENTION
  13. OMEPRAZOLE [Concomitant]
     Indication: GASTROOESOPHAGEAL REFLUX DISEASE
     Route: 048
  14. LIPITOR [Concomitant]
     Indication: BLOOD CHOLESTEROL ABNORMAL
  15. MECLIZINE [Concomitant]
     Indication: VERTIGO
     Dosage: 25 MG PRN ONE TABLET EVERY SIX HOURS
  16. GLIPIZIDE [Concomitant]
     Indication: DIABETES MELLITUS
  17. LISINOPRIL [Concomitant]
     Indication: BLOOD PRESSURE ABNORMAL
     Route: 048
  18. CYCLOBENZAPRINE HCL [Concomitant]
     Indication: MUSCLE SPASMS
     Dosage: 10 MG ONE TID PRN
  19. LISINOPRIL [Concomitant]
     Indication: RENAL DISORDER
     Route: 048
  20. DOCUSATE SODIUM [Concomitant]
     Indication: CONSTIPATION
  21. CYCLOBENZAPRINE HCL [Concomitant]
     Indication: FIBROMYALGIA
     Dosage: 10 MG ONE TID PRN
  22. LEVOTHYROXINE SODIUM [Concomitant]
     Indication: THYROID DISORDER
  23. ELAVIL [Suspect]
     Route: 065
  24. GLUCOPHAGE [Suspect]
     Route: 065
  25. LANTUS [Concomitant]
     Indication: DIABETES MELLITUS
     Dosage: 26 UNITS DAILY
     Route: 058
  26. TRAZODONE HCL [Concomitant]
     Indication: MENOPAUSE
  27. IBUPROFEN (ADVIL) [Concomitant]
     Indication: PAIN
     Dosage: 600 AM 600 PM

REACTIONS (6)
  - PAIN [None]
  - VOMITING [None]
  - LOSS OF CONSCIOUSNESS [None]
  - ABDOMINAL PAIN [None]
  - DIARRHOEA [None]
  - DRUG HYPERSENSITIVITY [None]
